FAERS Safety Report 12330772 (Version 1)
Quarter: 2016Q2

REPORT INFORMATION
  Report Type: Spontaneous
  Country: CA (occurrence: None)
  Receive Date: 20160503
  Receipt Date: 20160503
  Transmission Date: 20160815
  Serious: Yes (Hospitalization)
  Sender: FDA-Public Use
  Company Number: None

PATIENT
  Age: 67 Year
  Sex: Male
  Weight: 91 kg

DRUGS (1)
  1. DACARBAZINE. [Suspect]
     Active Substance: DACARBAZINE
     Dates: end: 20160404

REACTIONS (7)
  - Hypophagia [None]
  - Hypersomnia [None]
  - Chromaturia [None]
  - Nausea [None]
  - Abdominal pain [None]
  - Urinary tract infection [None]
  - Disease progression [None]

NARRATIVE: CASE EVENT DATE: 20160425
